FAERS Safety Report 23621507 (Version 2)
Quarter: 2024Q2

REPORT INFORMATION
  Report Type: Spontaneous
  Country: GB (occurrence: GB)
  Receive Date: 20240312
  Receipt Date: 20240418
  Transmission Date: 20240716
  Serious: Yes (Death, Hospitalization, Other)
  Sender: FDA-Public Use
  Company Number: GB-MYLANLABS-2024M1021907

PATIENT
  Sex: Female

DRUGS (1)
  1. CLOZARIL [Suspect]
     Active Substance: CLOZAPINE
     Indication: Product used for unknown indication
     Dosage: UNK
     Route: 048
     Dates: start: 20101005, end: 20240312

REACTIONS (5)
  - End stage renal disease [Fatal]
  - Terminal state [Unknown]
  - Haematoma muscle [Unknown]
  - Calciphylaxis [Unknown]
  - Dysphagia [Unknown]
